FAERS Safety Report 6354140-0 (Version None)
Quarter: 2009Q3

REPORT INFORMATION
  Report Type: 
  Country: None (occurrence: None)
  Receive Date: 20090914
  Receipt Date: 20090904
  Transmission Date: 20100115
  Serious: Yes (Other)
  Sender: FDA-Public Use
  Company Number: GB-BAYER-200931364GPV

PATIENT
  Age: 43 Year
  Sex: Female
  Weight: 49 kg

DRUGS (1)
  1. MIRENA [Suspect]
     Indication: CONTRACEPTION
     Route: 015
     Dates: start: 20090522, end: 20090707

REACTIONS (1)
  - BLOOD BILIRUBIN INCREASED [None]
